FAERS Safety Report 4499106-0 (Version None)
Quarter: 2004Q4

REPORT INFORMATION
  Report Type: 
  Country: None (occurrence: None)
  Receive Date: 20041111
  Receipt Date: 20041101
  Transmission Date: 20050328
  Serious: Yes (Life-Threatening, Hospitalization, Disabling)
  Sender: FDA-Public Use
  Company Number: US-MERCK-0411USA00266

PATIENT
  Age: 81 Year
  Sex: Male

DRUGS (8)
  1. VIOXX [Suspect]
     Indication: HEAT STROKE
     Route: 048
     Dates: start: 20040313, end: 20040930
  2. ACTOS [Concomitant]
     Route: 065
  3. ASPIRIN [Concomitant]
     Route: 065
  4. EFFEXOR [Concomitant]
     Route: 065
  5. MEVACOR [Concomitant]
     Route: 065
  6. ARICEPT [Concomitant]
     Route: 065
  7. ALLPYRAL [Concomitant]
     Route: 065
  8. TEMAZEPAM [Concomitant]
     Route: 065

REACTIONS (2)
  - DYSPNOEA [None]
  - HYPERTENSION [None]
